FAERS Safety Report 24250482 (Version 1)
Quarter: 2024Q3

REPORT INFORMATION
  Report Type: Spontaneous
  Country: US (occurrence: None)
  Receive Date: 20240824
  Receipt Date: 20240824
  Transmission Date: 20241016
  Serious: Yes (Disabling)
  Sender: Public
  Company Number: None

PATIENT
  Age: 40 Year
  Sex: Female
  Weight: 75.6 kg

DRUGS (1)
  1. VENOFER [Suspect]
     Active Substance: IRON SUCROSE
     Indication: Anaemia
     Dates: start: 20240524, end: 20240708

REACTIONS (6)
  - Blood pressure decreased [None]
  - Dizziness [None]
  - Headache [None]
  - Dizziness [None]
  - Chest pain [None]
  - Heart rate increased [None]

NARRATIVE: CASE EVENT DATE: 20240619
